FAERS Safety Report 8507128-5 (Version None)
Quarter: 2012Q3

REPORT INFORMATION
  Report Type: 
  Country: None (occurrence: None)
  Receive Date: 20120703
  Receipt Date: 20120627
  Transmission Date: 20120928
  Serious: Yes (Death, Hospitalization)
  Sender: FDA-Public Use
  Company Number: US-JNJFOC-20120614360

PATIENT
  Age: 74 Year
  Sex: Male
  Weight: 92 kg

DRUGS (4)
  1. DECITABINE [Suspect]
     Indication: ACUTE MYELOID LEUKAEMIA
     Dosage: 20 MG/M2, INTRAVENOUS
     Route: 042
     Dates: start: 20120622
  2. DECITABINE [Suspect]
     Indication: ACUTE MYELOID LEUKAEMIA
     Dosage: 20 MG/M2, INTRAVENOUS
     Route: 042
     Dates: start: 20120620
  3. BORTEZOMIB [Suspect]
     Indication: ACUTE MYELOID LEUKAEMIA
     Dosage: 1.3 MG/M2, SUBCUTANEOUS
     Route: 058
     Dates: start: 20120620
  4. BORTEZOMIB [Suspect]
     Indication: ACUTE MYELOID LEUKAEMIA
     Dosage: 1.3 MG/M2, SUBCUTANEOUS
     Route: 058
     Dates: start: 20120622

REACTIONS (9)
  - DEPRESSION [None]
  - FEBRILE NEUTROPENIA [None]
  - LACRIMATION INCREASED [None]
  - EXOPHTHALMOS [None]
  - PAIN [None]
  - SWELLING [None]
  - EYE DISCHARGE [None]
  - CARDIAC ARREST [None]
  - EYE INFLAMMATION [None]
